FAERS Safety Report 4881476-2 (Version None)
Quarter: 2006Q1

REPORT INFORMATION
  Report Type: 
  Country: None (occurrence: None)
  Receive Date: 20060116
  Receipt Date: 20051219
  Transmission Date: 20060701
  Serious: Yes (Death)
  Sender: FDA-Public Use
  Company Number: PHRM2005FR03301

PATIENT
  Age: 18 Year
  Sex: Female
  Weight: 44 kg

DRUGS (15)
  1. SIMULECT [Suspect]
     Indication: RENAL TRANSPLANT
     Dosage: 20 MG, ONCE/SINGLE
     Route: 042
     Dates: start: 20040128, end: 20040128
  2. ROCEPHIN [Concomitant]
     Dosage: 2 G DAILY
     Route: 048
     Dates: start: 20040128, end: 20040131
  3. NETROMYCINE [Concomitant]
     Dosage: 100 MG PER DAY
     Dates: start: 20040128, end: 20040131
  4. SOLU-MEDROL [Concomitant]
     Indication: RENAL TRANSPLANT
     Dosage: 400 MG DAILY
     Dates: start: 20040128, end: 20040128
  5. SOLU-MEDROL [Concomitant]
     Dosage: 60 MG DAILY
     Dates: start: 20040129, end: 20040131
  6. ZELITREX [Concomitant]
     Dosage: 500 MG, TID
     Dates: start: 20040128, end: 20040131
  7. MORPHINE [Concomitant]
     Dosage: 35 MG DAILY
     Dates: start: 20040128, end: 20040130
  8. LOVENOX [Concomitant]
     Dosage: 20 MG, BID
     Dates: start: 20040128, end: 20040129
  9. LOVENOX [Concomitant]
     Dosage: 30 MG, BID
     Dates: start: 20040130, end: 20040131
  10. PRIMPERAN INJ [Concomitant]
     Dosage: 10 MG, BID
     Dates: start: 20040129, end: 20040131
  11. CELLCEPT [Concomitant]
     Indication: RENAL TRANSPLANT
     Dates: start: 20040130, end: 20040131
  12. NUBAIN [Concomitant]
     Dosage: 60 MG DAILY
     Dates: start: 20040130, end: 20040131
  13. LUTERAN [Concomitant]
     Dosage: 10 MG DAILY
     Dates: start: 20040129, end: 20040131
  14. BACTRIM [Concomitant]
     Dosage: 800 MG DAILY
     Dates: start: 20040130
  15. FUNGIZONE [Concomitant]
     Dosage: 4 ML DAILY
     Dates: start: 20040128, end: 20040131

REACTIONS (10)
  - AGITATION [None]
  - ARRHYTHMOGENIC RIGHT VENTRICULAR DYSPLASIA [None]
  - CARDIAC ARREST [None]
  - CYANOSIS [None]
  - HEADACHE [None]
  - HEPATOMEGALY [None]
  - OESOPHAGEAL DISORDER [None]
  - PLEURAL EFFUSION [None]
  - PULMONARY HAEMORRHAGE [None]
  - PULMONARY OEDEMA [None]
